FAERS Safety Report 12284597 (Version 1)
Quarter: 2016Q2

REPORT INFORMATION
  Report Type: Spontaneous
  Country: US (occurrence: US)
  Receive Date: 20160420
  Receipt Date: 20160420
  Transmission Date: 20160815
  Serious: No
  Sender: FDA-Public Use
  Company Number: US-TEVA-603836USA

PATIENT
  Age: 84 Year
  Sex: Female

DRUGS (2)
  1. ATORVASTATIN CALCIUM. [Suspect]
     Active Substance: ATORVASTATIN CALCIUM
     Dates: start: 201302, end: 201410
  2. PRAVASTATIN [Suspect]
     Active Substance: PRAVASTATIN\PRAVASTATIN SODIUM
     Dates: start: 201410

REACTIONS (3)
  - Malaise [Unknown]
  - Muscle spasms [Not Recovered/Not Resolved]
  - Atrophy [Unknown]

NARRATIVE: CASE EVENT DATE: 201302
